FAERS Safety Report 6623377-5 (Version None)
Quarter: 2010Q1

REPORT INFORMATION
  Report Type: 
  Country: None (occurrence: None)
  Receive Date: 20100310
  Receipt Date: 20091201
  Transmission Date: 20100710
  Serious: No
  Sender: FDA-Public Use
  Company Number: US-BIOGENIDEC-2009BI039375

PATIENT
  Age: 52 Year
  Sex: Female

DRUGS (2)
  1. AVONEX [Suspect]
     Indication: MULTIPLE SCLEROSIS
     Route: 030
     Dates: start: 20091127
  2. NYQUIL [Concomitant]
     Indication: PREMEDICATION

REACTIONS (4)
  - DRY MOUTH [None]
  - INSOMNIA [None]
  - PAIN [None]
  - PYREXIA [None]
